FAERS Safety Report 4994233-3 (Version None)
Quarter: 2006Q1

REPORT INFORMATION
  Report Type: 
  Country: None (occurrence: None)
  Receive Date: 20060313
  Receipt Date: 20060103
  Transmission Date: 20060701
  Serious: Yes (Hospitalization, Other)
  Sender: FDA-Public Use
  Company Number: PHEH2005US12181

PATIENT
  Age: 23 Year
  Sex: Male
  Weight: 68 kg

DRUGS (7)
  1. TRILEPTAL [Suspect]
     Indication: CONVULSION
     Dosage: ORAL; 300 MG, BID,ORAL; 900 MG, QD, ORAL
     Route: 048
     Dates: start: 20050810, end: 20050801
  2. TRILEPTAL [Suspect]
     Indication: CONVULSION
     Dosage: ORAL; 300 MG, BID,ORAL; 900 MG, QD, ORAL
     Route: 048
     Dates: start: 20050801, end: 20050829
  3. TRILEPTAL [Suspect]
     Indication: CONVULSION
     Dosage: ORAL; 300 MG, BID,ORAL; 900 MG, QD, ORAL
     Route: 048
     Dates: start: 20050801
  4. ELAVIL [Concomitant]
  5. ZYPREXA [Concomitant]
  6. PROZAC [Concomitant]
  7. COGENTIN [Concomitant]

REACTIONS (7)
  - ALANINE AMINOTRANSFERASE INCREASED [None]
  - ASPARTATE AMINOTRANSFERASE INCREASED [None]
  - ASTHENIA [None]
  - CONVULSION [None]
  - COORDINATION ABNORMAL [None]
  - HEPATIC ENZYME ABNORMAL [None]
  - LETHARGY [None]
